FAERS Safety Report 10505229 (Version 2)
Quarter: 2014Q3

REPORT INFORMATION
  Report Type: Spontaneous
  Country: US (occurrence: None)
  Receive Date: 20140915
  Receipt Date: 20140915
  Transmission Date: 20150326
  Serious: Yes (Hospitalization, Other)
  Sender: FDA-Public Use
  Company Number: 2012SGN00066

PATIENT
  Age: 40 Year
  Sex: Female

DRUGS (1)
  1. ADCETRIS [Suspect]
     Active Substance: BRENTUXIMAB VEDOTIN
     Indication: HODGKIN^S DISEASE
     Dates: start: 20120104, end: 20120127

REACTIONS (2)
  - Neutropenia [None]
  - Abdominal pain [None]

NARRATIVE: CASE EVENT DATE: 2012
